FAERS Safety Report 6922977-2 (Version None)
Quarter: 2010Q3

REPORT INFORMATION
  Report Type: 
  Country: None (occurrence: None)
  Receive Date: 20100813
  Receipt Date: 20100804
  Transmission Date: 20110219
  Serious: Yes (Other)
  Sender: FDA-Public Use
  Company Number: US-PFIZER INC-2010098771

PATIENT
  Sex: Female
  Weight: 88.435 kg

DRUGS (3)
  1. CHANTIX [Suspect]
     Indication: SMOKING CESSATION THERAPY
     Dosage: 0.5 MG, 1X/DAY
     Route: 048
     Dates: start: 20100601
  2. BENICAR HCT [Concomitant]
     Dosage: [OLMESARTAN 40MG]/[HYDROCHLOROTHIAZIDE 25MG]
  3. NORVASC [Concomitant]
     Dosage: 10 MG

REACTIONS (2)
  - FLUID RETENTION [None]
  - OEDEMA [None]
